FAERS Safety Report 14230358 (Version 2)
Quarter: 2017Q4

REPORT INFORMATION
  Report Type: Report from Study
  Country: LB (occurrence: LB)
  Receive Date: 20171128
  Receipt Date: 20171204
  Transmission Date: 20180321
  Serious: Yes (Hospitalization, Other)
  Sender: FDA-Public Use
  Company Number: PHHY2017LB171905

PATIENT
  Age: 56 Year
  Sex: Male

DRUGS (1)
  1. TASIGNA [Suspect]
     Active Substance: NILOTINIB
     Indication: CHRONIC MYELOID LEUKAEMIA
     Dosage: 600 MG, QD
     Route: 048
     Dates: start: 20110623

REACTIONS (5)
  - Faeces discoloured [Unknown]
  - Anaemia [Recovering/Resolving]
  - Platelet disorder [Not Recovered/Not Resolved]
  - Dizziness [Unknown]
  - Haematochezia [Unknown]

NARRATIVE: CASE EVENT DATE: 20171117
